FAERS Safety Report 8321376-9 (Version None)
Quarter: 2012Q2

REPORT INFORMATION
  Report Type: 
  Country: None (occurrence: None)
  Receive Date: 20120430
  Receipt Date: 20120424
  Transmission Date: 20120825
  Serious: Yes (Death)
  Sender: FDA-Public Use
  Company Number: JP-ASTELLAS-2012JP002456

PATIENT
  Age: 67 Year
  Sex: Female

DRUGS (4)
  1. SOLDACTONE [Concomitant]
     Dosage: UNK
     Route: 065
  2. CEFTRIAXONE [Concomitant]
     Dosage: UNK
     Route: 065
     Dates: end: 20120317
  3. TPN [Concomitant]
     Route: 065
  4. FUNGUARD [Suspect]
     Dosage: 75 MG, UNKNOWN/D
     Route: 041
     Dates: start: 20120316, end: 20120324

REACTIONS (1)
  - PLATELET COUNT DECREASED [None]
